FAERS Safety Report 8518200-8 (Version None)
Quarter: 2012Q3

REPORT INFORMATION
  Report Type: 
  Country: None (occurrence: None)
  Receive Date: 20120718
  Receipt Date: 20111102
  Transmission Date: 20120928
  Serious: No
  Sender: FDA-Public Use
  Company Number: US-BRISTOL-MYERS SQUIBB COMPANY-16209389

PATIENT
  Age: 82 Year
  Sex: Male
  Weight: 75 kg

DRUGS (1)
  1. WARFARIN SODIUM [Suspect]
     Indication: ATRIAL FIBRILLATION
     Route: 048
     Dates: start: 19970901

REACTIONS (2)
  - ECCHYMOSIS [None]
  - HAEMOPTYSIS [None]
